FAERS Safety Report 18817398 (Version 1)
Quarter: 2021Q1

REPORT INFORMATION
  Report Type: Spontaneous
  Country: US (occurrence: US)
  Receive Date: 20210201
  Receipt Date: 20210201
  Transmission Date: 20210419
  Serious: Yes (Other)
  Sender: FDA-Public Use
  Company Number: US-PURDUE PHARMA-USA-2021-0202229

PATIENT
  Age: 59 Year
  Sex: Male
  Weight: 147 kg

DRUGS (4)
  1. ULORIC [Concomitant]
     Active Substance: FEBUXOSTAT
     Indication: GOUT
     Dosage: 40 MG, DAILY
     Route: 065
     Dates: start: 2013
  2. OXYCODONE HYDROCHLORIDE (SIMILAR TO NDA 22?272) [Suspect]
     Active Substance: OXYCODONE HYDROCHLORIDE
     Indication: BACK PAIN
     Dosage: 10 MG, PRN
     Route: 048
     Dates: start: 2019, end: 20200919
  3. INDOMETACIN [Concomitant]
     Active Substance: INDOMETHACIN
     Indication: GOUT
     Dosage: 50 MG, PRN
     Route: 065
     Dates: start: 2013
  4. LYRICA [Suspect]
     Active Substance: PREGABALIN
     Indication: GOUT
     Dosage: 150 MG, TID
     Route: 048
     Dates: start: 2014

REACTIONS (8)
  - Poor peripheral circulation [Not Recovered/Not Resolved]
  - Hypoaesthesia [Not Recovered/Not Resolved]
  - Pain in extremity [Unknown]
  - Intentional product misuse [Unknown]
  - Paraesthesia [Unknown]
  - Inadequate analgesia [Unknown]
  - Cellulitis [Unknown]
  - Thrombosis [Unknown]

NARRATIVE: CASE EVENT DATE: 20200919
